FAERS Safety Report 9226407 (Version 1)
Quarter: 2013Q2

REPORT INFORMATION
  Report Type: Spontaneous
  Country: IT (occurrence: IT)
  Receive Date: 20130411
  Receipt Date: 20130411
  Transmission Date: 20140414
  Serious: Yes (Hospitalization)
  Sender: FDA-Public Use
  Company Number: IT-MYLANLABS-2013S1007293

PATIENT
  Age: 85 Year
  Sex: Male

DRUGS (2)
  1. RAMIPRIL [Suspect]
     Indication: HYPERTENSION
     Route: 048
     Dates: start: 20120227, end: 20130227
  2. COUMADIN [Suspect]
     Indication: ATRIAL FIBRILLATION
     Route: 048
     Dates: start: 20120227, end: 20130227

REACTIONS (8)
  - Cardiac failure [Recovered/Resolved]
  - Renal failure chronic [Recovered/Resolved]
  - Asthenia [Recovered/Resolved]
  - Dysarthria [Recovered/Resolved]
  - Hyperkalaemia [Recovered/Resolved]
  - International normalised ratio increased [Recovered/Resolved]
  - Overdose [Recovered/Resolved]
  - Hypertension [Recovered/Resolved]
